FAERS Safety Report 5025148-2 (Version None)
Quarter: 2006Q2

REPORT INFORMATION
  Report Type: 
  Country: None (occurrence: None)
  Receive Date: 20060426
  Receipt Date: 20060126
  Transmission Date: 20061013
  Serious: Yes (Other)
  Sender: FDA-Public Use
  Company Number: 2006013918

PATIENT
  Age: 30 Year
  Sex: Female
  Weight: 58.9676 kg

DRUGS (6)
  1. LYRICA [Suspect]
     Indication: NEURALGIA
     Dosage: 300 MG (150 MG, 2 IN 1 D)
     Dates: start: 20050101
  2. LEVONORGESTREL (LEVONORGESREL) [Concomitant]
  3. ADVAIR DISKUS 100/50 [Concomitant]
  4. SINGULAIR [Concomitant]
  5. NASONEX [Concomitant]
  6. BACTRIM [Concomitant]

REACTIONS (12)
  - ANOREXIA [None]
  - ASTHENIA [None]
  - FEELING ABNORMAL [None]
  - HEADACHE [None]
  - HYPERHIDROSIS [None]
  - INFLUENZA LIKE ILLNESS [None]
  - INSOMNIA [None]
  - NASOPHARYNGITIS [None]
  - NAUSEA [None]
  - PAIN [None]
  - SOMNOLENCE [None]
  - TREMOR [None]
